FAERS Safety Report 18799910 (Version 1)
Quarter: 2021Q1

REPORT INFORMATION
  Report Type: Spontaneous
  Country: SE (occurrence: SE)
  Receive Date: 20210128
  Receipt Date: 20210128
  Transmission Date: 20210419
  Serious: Yes (Other)
  Sender: FDA-Public Use
  Company Number: SE-TEVA-2021-SE-1874034

PATIENT
  Sex: Male

DRUGS (1)
  1. CLOZAPINE ACTAVIS [Suspect]
     Active Substance: CLOZAPINE
     Route: 048

REACTIONS (3)
  - Pancytopenia [Unknown]
  - Pyrexia [Unknown]
  - Pain [Unknown]
